FAERS Safety Report 24741712 (Version 1)
Quarter: 2024Q4

REPORT INFORMATION
  Report Type: Spontaneous
  Country: GB (occurrence: GB)
  Receive Date: 20241217
  Receipt Date: 20241217
  Transmission Date: 20250115
  Serious: Yes (Other)
  Sender: AUROBINDO
  Company Number: GB-MHRA-MED-202411281945340890-YFDVH

PATIENT
  Sex: Male

DRUGS (4)
  1. DULOXETINE [Suspect]
     Active Substance: DULOXETINE
     Indication: Hemicrania continua
     Dosage: UNK
     Route: 065
  2. OMEPRAZOLE [Concomitant]
     Active Substance: OMEPRAZOLE
     Indication: Hernia
     Dosage: UNK
     Route: 065
  3. ATORVASTATIN [Concomitant]
     Active Substance: ATORVASTATIN
     Indication: Hypercholesterolaemia
     Dosage: UNK
     Route: 065
  4. TAMSULOSIN [Concomitant]
     Active Substance: TAMSULOSIN
     Indication: Prostatomegaly
     Dosage: UNK
     Route: 065

REACTIONS (6)
  - Blood pressure fluctuation [Unknown]
  - Blood pressure increased [Recovered/Resolved]
  - Restlessness [Unknown]
  - Disturbance in attention [Unknown]
  - Fatigue [Unknown]
  - Drug ineffective [Unknown]
